FAERS Safety Report 5788857-3 (Version None)
Quarter: 2008Q2

REPORT INFORMATION
  Report Type: 
  Country: None (occurrence: None)
  Receive Date: 20080626
  Receipt Date: 20080617
  Transmission Date: 20081010
  Serious: Yes (Hospitalization)
  Sender: FDA-Public Use
  Company Number: DE-WATSON-2008-03684

PATIENT
  Age: 8 Year
  Sex: Male
  Weight: 27 kg

DRUGS (6)
  1. DEXAMETHASONE [Suspect]
     Indication: PROPHYLAXIS OF NAUSEA AND VOMITING
     Dosage: 4 MG IMMEDIATELY AFTER INDUCTION OF ANESTHESIA
     Route: 042
  2. PROPOFOL [Concomitant]
     Indication: ANAESTHESIA
     Dosage: UNK
     Route: 042
  3. ALFENTANIL [Concomitant]
     Indication: ANAESTHESIA
     Dosage: UNK
     Route: 042
  4. DESFLURANE [Concomitant]
     Indication: ANAESTHESIA
     Dosage: 6-7 % DESFLURANE
     Route: 065
  5. REMIFENTANIL [Concomitant]
     Indication: ANAESTHESIA
     Dosage: UNK
     Route: 042
  6. ACETAMINOPHEN [Concomitant]
     Indication: PAIN PROPHYLAXIS
     Dosage: 500 MG, 15 MINUTES AFTER INDUCTION
     Route: 042

REACTIONS (1)
  - TUMOUR LYSIS SYNDROME [None]
